FAERS Safety Report 9803146 (Version 1)
Quarter: 2014Q1

REPORT INFORMATION
  Report Type: Spontaneous
  Country: US (occurrence: None)
  Receive Date: 20140106
  Receipt Date: 20140106
  Transmission Date: 20141002
  Serious: Yes (Hospitalization)
  Sender: FDA-Public Use
  Company Number: None

PATIENT
  Age: 59 Year
  Sex: Male
  Weight: 61.69 kg

DRUGS (4)
  1. MIDOSTAURIN [Suspect]
     Indication: ACUTE MYELOID LEUKAEMIA
     Dosage: 50MG BID PO DAYS 8-21
     Route: 048
  2. BORTEZOMIB [Suspect]
     Indication: ACUTE MYELOID LEUKAEMIA
     Dosage: 1.3 MG/M2 SQ DAYS 8+15
  3. METOPROL [Concomitant]
  4. OXYCODONE [Concomitant]

REACTIONS (4)
  - Hypoxia [None]
  - Colitis [None]
  - Diarrhoea [None]
  - Hypophosphataemia [None]
